FAERS Safety Report 15643596 (Version 2)
Quarter: 2019Q4

REPORT INFORMATION
  Report Type: Spontaneous
  Country: CA (occurrence: CA)
  Receive Date: 20181121
  Receipt Date: 20191018
  Transmission Date: 20200122
  Serious: Yes (Other)
  Sender: FDA-Public Use
  Company Number: CA-PFIZER INC-2018473820

PATIENT
  Age: 50 Year
  Sex: Male

DRUGS (5)
  1. PREDNISONE. [Concomitant]
     Active Substance: PREDNISONE
     Dosage: UNK DOSE DECREASING
  2. PANTOLOC [PANTOPRAZOLE] [Concomitant]
     Active Substance: PANTOPRAZOLE SODIUM
     Dosage: UNK
  3. METHOTREXATE SODIUM. [Suspect]
     Active Substance: METHOTREXATE SODIUM
     Dosage: 25 MG, UNK
     Route: 058
     Dates: start: 2014
  4. INFLECTRA [Concomitant]
     Active Substance: INFLIXIMAB-DYYB
     Indication: CROHN^S DISEASE
     Dosage: 350 MG Q (EVERY) 0,2, 6 WEEKS, THEN EVERY 8 WEKKS
     Route: 042
     Dates: start: 20181129
  5. INFLECTRA [Concomitant]
     Active Substance: INFLIXIMAB-DYYB
     Dosage: 350 MG Q (EVERY) 0,2, 6 WEEKS, THEN EVERY 8 WEKKS
     Route: 042
     Dates: start: 20191015

REACTIONS (7)
  - Intestinal fistula [Unknown]
  - Condition aggravated [Unknown]
  - Off label use [Unknown]
  - Product use issue [Unknown]
  - Abscess intestinal [Recovered/Resolved]
  - Cellulitis [Unknown]
  - Treatment failure [Unknown]

NARRATIVE: CASE EVENT DATE: 2014
